FAERS Safety Report 9160508 (Version 2)
Quarter: 2013Q2

REPORT INFORMATION
  Report Type: Report from Study
  Country: NL (occurrence: NL)
  Receive Date: 20130313
  Receipt Date: 20130418
  Transmission Date: 20140414
  Serious: Yes (Hospitalization)
  Sender: FDA-Public Use
  Company Number: PHHO2013NL003748

PATIENT
  Sex: 0

DRUGS (3)
  1. CGS 20267 [Suspect]
     Indication: BREAST CANCER FEMALE
     Dosage: 2.5 MG, UNK
     Route: 048
     Dates: start: 20100705, end: 20130305
  2. CGS 20267 [Suspect]
     Dosage: UNK
     Dates: start: 20130315
  3. OMEPRAZOL//OMEPRAZOLE [Concomitant]
     Indication: RADIOTHERAPY
     Dosage: 40 MG, QD
     Route: 048
     Dates: end: 20130305

REACTIONS (1)
  - Hepatitis E [Recovering/Resolving]
